FAERS Safety Report 9944423 (Version 1)
Quarter: 2014Q1

REPORT INFORMATION
  Report Type: Report from Study
  Country: US (occurrence: US)
  Receive Date: 20140303
  Receipt Date: 20140303
  Transmission Date: 20141002
  Serious: No
  Sender: FDA-Public Use
  Company Number: US-ABBVIE-13P-163-1054286-00

PATIENT
  Age: 61 Year
  Sex: Female
  Weight: 72.64 kg

DRUGS (15)
  1. HUMIRA [Suspect]
     Indication: RHEUMATOID ARTHRITIS
     Dates: start: 2007, end: 20121031
  2. HUMIRA [Suspect]
     Dates: start: 20130116
  3. METHOTREXATE [Concomitant]
     Indication: RHEUMATOID ARTHRITIS
  4. TOPOMAX [Concomitant]
     Indication: MIGRAINE
  5. PROGESTERONE [Concomitant]
     Indication: HORMONE REPLACEMENT THERAPY
  6. EFFEXOR [Concomitant]
     Indication: DEPRESSION
  7. ARMOUR THYROID [Concomitant]
     Indication: THYROID DISORDER
  8. COQ10 [Concomitant]
     Indication: SUPPLEMENTATION THERAPY
  9. FOLIC ACID [Concomitant]
     Indication: VITAMIN SUPPLEMENTATION
  10. MULTIVITAMIN [Concomitant]
     Indication: VITAMIN SUPPLEMENTATION
  11. BIOTIN [Concomitant]
     Indication: SUPPLEMENTATION THERAPY
  12. CALCIUM [Concomitant]
     Indication: MINERAL SUPPLEMENTATION
  13. VIVAL PATCH [Concomitant]
     Indication: HORMONE REPLACEMENT THERAPY
  14. ASTHMANEX [Concomitant]
     Indication: ASTHMA
  15. VACCINES [Concomitant]
     Indication: PROPHYLAXIS
     Dates: start: 201211, end: 201211

REACTIONS (3)
  - Vertigo [Recovered/Resolved]
  - Gastroenteritis viral [Recovered/Resolved]
  - Arthralgia [Recovered/Resolved]
